FAERS Safety Report 5293243-9 (Version None)
Quarter: 2007Q2

REPORT INFORMATION
  Report Type: 
  Country: None (occurrence: None)
  Receive Date: 20070411
  Receipt Date: 20070402
  Transmission Date: 20071010
  Serious: Yes (Hospitalization)
  Sender: FDA-Public Use
  Company Number: FR-AVENTIS-200612355FR

PATIENT
  Age: 79 Year
  Sex: Female
  Weight: 70 kg

DRUGS (2)
  1. LOVENOX [Suspect]
     Indication: PHLEBITIS SUPERFICIAL
     Route: 058
     Dates: start: 20060305, end: 20060315
  2. PREVISCAN                          /00789001/ [Concomitant]
     Indication: PHLEBITIS SUPERFICIAL
     Route: 048
     Dates: end: 20060301

REACTIONS (3)
  - ANAEMIA [None]
  - MUSCLE HAEMORRHAGE [None]
  - SKIN NECROSIS [None]
